FAERS Safety Report 9102388 (Version 2)
Quarter: 2013Q2

REPORT INFORMATION
  Report Type: Spontaneous
  Country: IT (occurrence: IT)
  Receive Date: 20130218
  Receipt Date: 20130404
  Transmission Date: 20140414
  Serious: Yes (Hospitalization)
  Sender: FDA-Public Use
  Company Number: IT-ROCHE-1191816

PATIENT
  Age: 82 Year
  Sex: Male

DRUGS (7)
  1. RIVOTRIL [Suspect]
     Indication: NEUROLOGICAL SYMPTOM
     Route: 048
     Dates: start: 20121115, end: 20121117
  2. RAMIPRIL [Concomitant]
     Route: 065
  3. BISOPROLOL [Concomitant]
     Route: 065
  4. SIMVASTATIN [Concomitant]
     Route: 065
  5. ZOLPIDEM TARTRATE [Concomitant]
  6. ISOCEF [Concomitant]
  7. WALIX [Concomitant]

REACTIONS (2)
  - Malaise [Recovered/Resolved]
  - Presyncope [Recovered/Resolved]
